FAERS Safety Report 14147139 (Version 1)
Quarter: 2017Q4

REPORT INFORMATION
  Report Type: Spontaneous
  Country: IT (occurrence: IT)
  Receive Date: 20171031
  Receipt Date: 20171031
  Transmission Date: 20180321
  Serious: Yes (Other)
  Sender: FDA-Public Use
  Company Number: IT-BAYER-2017-207263

PATIENT
  Age: 73 Year
  Sex: Male

DRUGS (2)
  1. CANDESARTAN CILEXETIL. [Concomitant]
     Active Substance: CANDESARTAN CILEXETIL
  2. CIPROFLOXACIN. [Suspect]
     Active Substance: CIPROFLOXACIN
     Indication: ENTEROCOLITIS INFECTIOUS
     Dosage: DAILY DOSE 1 G
     Route: 048
     Dates: start: 20031117, end: 20031118

REACTIONS (1)
  - Oliguria [Recovered/Resolved with Sequelae]

NARRATIVE: CASE EVENT DATE: 20031118
